FAERS Safety Report 8716287 (Version 2)
Quarter: 2013Q4

REPORT INFORMATION
  Report Type: Report from Study
  Country: SG (occurrence: SG)
  Receive Date: 20120810
  Receipt Date: 20131031
  Transmission Date: 20140711
  Serious: Yes (Hospitalization, Other)
  Sender: FDA-Public Use
  Company Number: SG-009507513-1110USA03904

PATIENT
  Age: 63 Year
  Sex: Male
  Weight: 59.9 kg

DRUGS (18)
  1. BLINDED EZETIMIBE (+) SIMVASTATIN [Suspect]
     Indication: ACUTE CORONARY SYNDROME
     Dosage: UNK
     Route: 048
     Dates: start: 20070212
  2. BLINDED PLACEBO [Suspect]
     Indication: ACUTE CORONARY SYNDROME
     Dosage: UNK
     Route: 048
     Dates: start: 20070212
  3. BLINDED POST TRIAL THERAPY [Suspect]
     Indication: ACUTE CORONARY SYNDROME
     Dosage: UNK
     Route: 048
     Dates: start: 20070212
  4. BLINDED PRE TRIAL THERAPY [Suspect]
     Indication: ACUTE CORONARY SYNDROME
     Dosage: UNK
     Route: 048
     Dates: start: 20070212
  5. BLINDED SIMVASTATIN [Suspect]
     Indication: ACUTE CORONARY SYNDROME
     Dosage: UNK
     Route: 048
     Dates: start: 20070212
  6. BLINDED THERAPY [Suspect]
     Indication: ACUTE CORONARY SYNDROME
     Dosage: UNK
     Route: 048
     Dates: start: 20070212
  7. PLACEBO [Suspect]
     Indication: ACUTE CORONARY SYNDROME
     Dosage: UNK
     Route: 048
     Dates: start: 20070212
  8. ASPIRIN [Concomitant]
     Dosage: 100 MG, QD
     Route: 048
     Dates: start: 20070204
  9. METFORMIN [Concomitant]
     Dosage: 2550 MG, QD
     Route: 048
     Dates: start: 20070309
  10. HYTRIN [Concomitant]
     Dosage: 1 MG, QD
     Route: 048
     Dates: start: 20090526
  11. ENALAPRIL MALEATE [Concomitant]
     Dosage: 25 MG, QD
     Route: 048
     Dates: start: 20070309
  12. VASTAREL [Concomitant]
     Dosage: 60 MG, QD
     Route: 048
     Dates: start: 20110624
  13. GLIPIZIDE [Concomitant]
     Dosage: 20 MG, QD
     Route: 048
     Dates: start: 20070204
  14. IMDUR [Concomitant]
     Dosage: 60 MG, QD
     Route: 048
     Dates: start: 20071011
  15. BISOPROLOL [Concomitant]
     Dosage: 7.5 MG, QD
     Route: 048
     Dates: start: 20070309
  16. KETOTOP [Concomitant]
     Dosage: 30 MG, PRN
     Route: 062
     Dates: start: 20110624
  17. NITROGLYCERIN [Concomitant]
     Dosage: 0.5 MG, PRN
     Route: 060
     Dates: start: 20070810
  18. FAMOTIDINE [Concomitant]
     Dosage: 40 MG, QD
     Route: 048
     Dates: start: 20070619

REACTIONS (1)
  - Colon cancer [Recovered/Resolved]
